FAERS Safety Report 4725630-9 (Version None)
Quarter: 2005Q3

REPORT INFORMATION
  Report Type: 
  Country: None (occurrence: None)
  Receive Date: 20050727
  Receipt Date: 20050701
  Transmission Date: 20060218
  Serious: Yes (Other)
  Sender: FDA-Public Use
  Company Number: GB-MERCK-0507GBR00012

PATIENT
  Age: 78 Year
  Sex: Female

DRUGS (7)
  1. ZETIA [Suspect]
     Indication: HYPERCHOLESTEROLAEMIA
     Route: 048
     Dates: start: 20050620, end: 20050601
  2. ZETIA [Suspect]
     Route: 048
     Dates: start: 20050101
  3. LEVOTHYROXINE SODIUM [Concomitant]
     Indication: HYPOTHYROIDISM
     Route: 065
     Dates: start: 19980101
  4. ASPIRIN [Concomitant]
     Indication: ANTIPLATELET THERAPY
     Route: 065
     Dates: start: 19970101
  5. THEOPHYLLINE SODIUM GLYCINATE [Concomitant]
     Indication: ASTHMA
     Route: 065
     Dates: start: 19890101
  6. CLOBAZAM [Concomitant]
     Indication: EPILEPSY
     Route: 065
     Dates: start: 19990101
  7. LAMOTRIGINE [Concomitant]
     Indication: EPILEPSY
     Route: 065
     Dates: start: 19970101

REACTIONS (3)
  - EPILEPSY [None]
  - HEADACHE [None]
  - MUSCLE TWITCHING [None]
